FAERS Safety Report 7563687-0 (Version None)
Quarter: 2011Q2

REPORT INFORMATION
  Report Type: 
  Country: None (occurrence: None)
  Receive Date: 20110622
  Receipt Date: 20110615
  Transmission Date: 20111010
  Serious: Yes (Hospitalization, Other)
  Sender: FDA-Public Use
  Company Number: ES-ABBOTT-11P-144-0732568-00

PATIENT
  Age: 50 Year
  Sex: Male

DRUGS (3)
  1. VALPROATE SODIUM [Interacting]
     Route: 042
  2. MEROPENEM [Interacting]
     Indication: PNEUMONIA
     Route: 042
  3. VALPROATE SODIUM [Suspect]
     Indication: PRODUCT USED FOR UNKNOWN INDICATION
     Route: 048

REACTIONS (3)
  - DRUG LEVEL DECREASED [None]
  - DRUG INTERACTION [None]
  - CONVULSION [None]
